FAERS Safety Report 19741430 (Version 1)
Quarter: 2021Q3

REPORT INFORMATION
  Report Type: Spontaneous
  Country: CN (occurrence: CN)
  Receive Date: 20210825
  Receipt Date: 20210825
  Transmission Date: 20211014
  Serious: Yes (Hospitalization)
  Sender: FDA-Public Use
  Company Number: CN-B.I. PHARMACEUTICALS,INC./RIDGEFIELD-2021-BI-122417

PATIENT
  Age: 73 Year
  Sex: Male

DRUGS (4)
  1. MADOPAR [Suspect]
     Active Substance: BENSERAZIDE HYDROCHLORIDE\LEVODOPA
     Route: 048
     Dates: start: 20210402, end: 20210413
  2. SIFROL [Suspect]
     Active Substance: PRAMIPEXOLE
     Indication: DRUG THERAPY
     Route: 048
     Dates: end: 20210402
  3. MADOPAR [Suspect]
     Active Substance: BENSERAZIDE HYDROCHLORIDE\LEVODOPA
     Indication: DRUG THERAPY
     Route: 048
     Dates: start: 20210322, end: 20210322
  4. MADOPAR [Suspect]
     Active Substance: BENSERAZIDE HYDROCHLORIDE\LEVODOPA
     Route: 048
     Dates: start: 20210323, end: 20210401

REACTIONS (1)
  - Serotonin syndrome [Recovering/Resolving]

NARRATIVE: CASE EVENT DATE: 20210323
